FAERS Safety Report 5307643-1 (Version None)
Quarter: 2007Q2

REPORT INFORMATION
  Report Type: 
  Country: None (occurrence: None)
  Receive Date: 20070418
  Receipt Date: 20070413
  Transmission Date: 20071010
  Serious: Yes (Life-Threatening)
  Sender: FDA-Public Use
  Company Number: 2007-156850-NL

PATIENT
  Age: 40 Year
  Sex: Female

DRUGS (7)
  1. VECURONIUM BROMIDE [Suspect]
     Indication: GENERAL ANAESTHESIA
     Dosage: 8 MG ONCE/ 2 MG ONCE/2 MG ONCE ; INTRAVENOUS NOS
     Route: 042
  2. PROPOFOL [Suspect]
     Indication: GENERAL ANAESTHESIA
     Dosage: INTRAVENOUS DRIP
     Route: 041
  3. FENTANYL [Suspect]
     Indication: GENERAL ANAESTHESIA
     Dosage: 50 UG ONCE; INTRAVENOUS (NOS)
     Route: 042
  4. ROPIVACAINE [Suspect]
     Indication: GENERAL ANAESTHESIA
     Dosage: 8 MG ONCE; EPIDURAL
     Route: 008
  5. ATROPINE [Concomitant]
  6. NEOSTIGMINE [Concomitant]
  7. .. [Concomitant]

REACTIONS (4)
  - BRADYCARDIA [None]
  - CARDIAC ARREST [None]
  - SICK SINUS SYNDROME [None]
  - SINUS ARREST [None]
